FAERS Safety Report 7623024-X (Version None)
Quarter: 2011Q3

REPORT INFORMATION
  Report Type: 
  Country: None (occurrence: None)
  Receive Date: 20110719
  Receipt Date: 20110719
  Transmission Date: 20111222
  Serious: Yes (Other)
  Sender: FDA-Public Use
  Company Number: None

PATIENT
  Age: 54 Year
  Sex: Female
  Weight: 64.8644 kg

DRUGS (1)
  1. LEVOFLOXACIN [Suspect]
     Indication: OROPHARYNGEAL PAIN
     Dosage: ONE TABLET ONCE DAILY PO
     Route: 048
     Dates: start: 20110709, end: 20110713

REACTIONS (5)
  - MUSCLE STRAIN [None]
  - JOINT RANGE OF MOTION DECREASED [None]
  - JOINT SWELLING [None]
  - DISCOMFORT [None]
  - WEIGHT BEARING DIFFICULTY [None]
